FAERS Safety Report 11043629 (Version 1)
Quarter: 2015Q2

REPORT INFORMATION
  Report Type: Spontaneous
  Country: US (occurrence: None)
  Receive Date: 20150416
  Receipt Date: 20150416
  Transmission Date: 20150821
  Serious: Yes (Disabling)
  Sender: FDA-Public Use
  Company Number: None

PATIENT
  Age: 73 Year
  Sex: Male
  Weight: 72.58 kg

DRUGS (6)
  1. FLAX OIL [Concomitant]
  2. FIBERCON [Concomitant]
     Active Substance: CALCIUM POLYCARBOPHIL
  3. AMLODIPINE BESYLATE. [Suspect]
     Active Substance: AMLODIPINE BESYLATE
     Indication: BLOOD PRESSURE MANAGEMENT
     Dosage: 1 PILL
     Route: 048
     Dates: start: 20140318, end: 20150311
  4. TRIAMTERENE. [Concomitant]
     Active Substance: TRIAMTERENE
  5. FISH OIL [Concomitant]
     Active Substance: FISH OIL
  6. 50 PLUS MULTI VITAMIN [Concomitant]

REACTIONS (4)
  - Fatigue [None]
  - Flushing [None]
  - Muscle tightness [None]
  - Dizziness [None]

NARRATIVE: CASE EVENT DATE: 20150415
